FAERS Safety Report 4649625-9 (Version None)
Quarter: 2005Q2

REPORT INFORMATION
  Report Type: 
  Country: None (occurrence: None)
  Receive Date: 20050427
  Receipt Date: 20050413
  Transmission Date: 20051028
  Serious: Yes (Other)
  Sender: FDA-Public Use
  Company Number: CEL-2005-00503-ROC

PATIENT
  Age: 13 Year
  Sex: Female
  Weight: 46 kg

DRUGS (2)
  1. METADATE CD [Suspect]
     Indication: ATTENTION DEFICIT/HYPERACTIVITY DISORDER
     Dosage: 20MG INCREASE TO 40MG EVERY MORNING PER ORAL THEN 20MG TWICE DAILY PER ORAL)
     Route: 048
     Dates: start: 20030423, end: 20050323
  2. METHYLPHENIDATE HCL [Concomitant]

REACTIONS (8)
  - ABDOMINAL PAIN [None]
  - DEPRESSED MOOD [None]
  - DEPRESSION [None]
  - HEADACHE [None]
  - INAPPROPRIATE SCHEDULE OF DRUG ADMINISTRATION [None]
  - INTENTIONAL SELF-INJURY [None]
  - SELF-INJURIOUS IDEATION [None]
  - SKIN LACERATION [None]
